FAERS Safety Report 7108305-0 (Version None)
Quarter: 2010Q4

REPORT INFORMATION
  Report Type: 
  Country: None (occurrence: None)
  Receive Date: 20101117
  Receipt Date: 20101108
  Transmission Date: 20110411
  Serious: Yes (Other)
  Sender: FDA-Public Use
  Company Number: DE-JNJFOC-20101104347

PATIENT
  Sex: Female

DRUGS (2)
  1. DOLORMIN EXTRA [Suspect]
     Route: 048
  2. DOLORMIN EXTRA [Suspect]
     Indication: DYSMENORRHOEA
     Dosage: USED ON AND OFF, UP TO EIGHT 400 MG  TABLETS PER DAY.
     Route: 048

REACTIONS (1)
  - INFERTILITY [None]
